FAERS Safety Report 15801155 (Version 2)
Quarter: 2019Q1

REPORT INFORMATION
  Report Type: Other
  Country: RO (occurrence: RO)
  Receive Date: 20190109
  Receipt Date: 20190214
  Transmission Date: 20190417
  Serious: Yes (Other)
  Sender: FDA-Public Use
  Company Number: RO-CELLTRION INC.-2019RO017595

PATIENT

DRUGS (2)
  1. RITUXIMAB (UNKNOWN) [Suspect]
     Active Substance: RITUXIMAB
     Indication: NON-HODGKIN^S LYMPHOMA
     Dosage: 1400 MG EVERY 2 MONTHS
     Route: 058
  2. RITUXIMAB (UNKNOWN) [Suspect]
     Active Substance: RITUXIMAB
     Indication: NON-HODGKIN^S LYMPHOMA
     Dosage: 1400 MG
     Route: 042
     Dates: start: 20170915

REACTIONS (6)
  - Viral infection [Unknown]
  - Immunodeficiency [Not Recovered/Not Resolved]
  - Cardiac flutter [Unknown]
  - Atrial fibrillation [Unknown]
  - Malaise [Unknown]
  - Leukopenia [Not Recovered/Not Resolved]
